FAERS Safety Report 5318021-3 (Version None)
Quarter: 2007Q2

REPORT INFORMATION
  Report Type: 
  Country: None (occurrence: None)
  Receive Date: 20070507
  Receipt Date: 20070426
  Transmission Date: 20071010
  Serious: Yes (Hospitalization, Other)
  Sender: FDA-Public Use
  Company Number: FR-ROCHE-472814

PATIENT
  Age: 34 Year
  Sex: Female
  Weight: 45 kg

DRUGS (10)
  1. LOXEN [Suspect]
     Indication: HYPERTENSION
     Dosage: NICARDIPINE INITIATED BEFORE 20 MARCH 2003.
     Route: 048
  2. RAPAMUNE [Interacting]
     Route: 048
     Dates: start: 20021201
  3. RAPAMUNE [Interacting]
     Dosage: DOSAGE REGIMEN REPORTED AS 1 MG UID/QD. DOSAGE PROGRESSIVELY DECREASED TO 1 MG/DAY.
     Route: 048
     Dates: start: 20030421
  4. PROGRAF [Suspect]
     Indication: DRUG USE FOR UNKNOWN INDICATION
     Route: 065
     Dates: start: 20021201
  5. FUMAFER [Concomitant]
  6. FUNGIZONE [Concomitant]
     Indication: APHTHOUS STOMATITIS
  7. IRBESARTAN [Concomitant]
  8. TENORMIN [Concomitant]
     Indication: HYPERTENSION
  9. SOLUPRED [Concomitant]
     Indication: PROPHYLAXIS AGAINST TRANSPLANT REJECTION
  10. OMEPRAZOLE [Concomitant]
     Indication: PROPHYLAXIS

REACTIONS (5)
  - COUGH [None]
  - DRUG INTERACTION [None]
  - EAR, NOSE AND THROAT EXAMINATION ABNORMAL [None]
  - IMMUNOSUPPRESSANT DRUG LEVEL INCREASED [None]
  - LUNG DISORDER [None]
